FAERS Safety Report 19420920 (Version 2)
Quarter: 2021Q3

REPORT INFORMATION
  Report Type: Spontaneous
  Country: GB (occurrence: GB)
  Receive Date: 20210616
  Receipt Date: 20210824
  Transmission Date: 20211014
  Serious: Yes (Other)
  Sender: FDA-Public Use
  Company Number: GB-REGENERON PHARMACEUTICALS, INC.-2021-60266

PATIENT

DRUGS (2)
  1. EYLEA [Suspect]
     Active Substance: AFLIBERCEPT
     Indication: NEOVASCULAR AGE-RELATED MACULAR DEGENERATION
     Dosage: THREE INITIAL MONTHLY DOSES UPON STARTING TREATMENT
  2. EYLEA [Suspect]
     Active Substance: AFLIBERCEPT
     Dosage: BIMONTHLY INJECTIONS

REACTIONS (1)
  - Neovascular age-related macular degeneration [Unknown]
